FAERS Safety Report 16024653 (Version 1)
Quarter: 2019Q1

REPORT INFORMATION
  Report Type: Spontaneous
  Country: US (occurrence: US)
  Receive Date: 20190301
  Receipt Date: 20190301
  Transmission Date: 20190418
  Serious: No
  Sender: FDA-Public Use
  Company Number: US-HILL DERMACEUTICALS, INC.-2063412

PATIENT
  Age: 90 Year
  Sex: Female

DRUGS (1)
  1. DERMA-SMOOTHE/FS [Suspect]
     Active Substance: FLUOCINOLONE ACETONIDE
     Route: 061

REACTIONS (2)
  - Hair texture abnormal [None]
  - Dry skin [Unknown]
